FAERS Safety Report 6453409-9 (Version None)
Quarter: 2009Q4

REPORT INFORMATION
  Report Type: 
  Country: None (occurrence: None)
  Receive Date: 20091124
  Receipt Date: 20091113
  Transmission Date: 20100525
  Serious: Yes (Death)
  Sender: FDA-Public Use
  Company Number: FI-ROCHE-669013

PATIENT
  Age: 79 Year
  Sex: Female

DRUGS (2)
  1. TAMIFLU [Suspect]
     Indication: H1N1 INFLUENZA
     Route: 065
  2. ANTIBIOTIC NOS [Concomitant]
     Route: 042

REACTIONS (1)
  - DEATH [None]
